FAERS Safety Report 23931066 (Version 3)
Quarter: 2024Q3

REPORT INFORMATION
  Report Type: Report from Study
  Country: CN (occurrence: CN)
  Receive Date: 20240603
  Receipt Date: 20240813
  Transmission Date: 20241017
  Serious: Yes (Hospitalization, Other)
  Sender: NOVO NORDISK
  Company Number: CN-NOVOPROD-1173981

PATIENT
  Age: 13 Year
  Sex: Male

DRUGS (3)
  1. NOVOEIGHT [Suspect]
     Active Substance: ANTIHEMOPHILIC FACTOR, HUMAN RECOMBINANT
     Indication: Factor VIII deficiency
     Dosage: 1500 IU, QD
     Route: 042
     Dates: start: 20240511
  2. NOVOEIGHT [Suspect]
     Active Substance: ANTIHEMOPHILIC FACTOR, HUMAN RECOMBINANT
     Dosage: 1000 IU, BIDX2DAYS
     Route: 042
     Dates: start: 20240619
  3. NOVOEIGHT [Suspect]
     Active Substance: ANTIHEMOPHILIC FACTOR, HUMAN RECOMBINANT
     Dosage: 500 IU, QOD X 8 DAYS
     Route: 042
     Dates: start: 20240801

REACTIONS (7)
  - Haemarthrosis [Recovering/Resolving]
  - Oedema peripheral [Recovering/Resolving]
  - Anti factor VIII antibody positive [Unknown]
  - Ligament sprain [Recovering/Resolving]
  - Joint effusion [Recovering/Resolving]
  - Joint swelling [Recovering/Resolving]
  - Haemarthrosis [Unknown]

NARRATIVE: CASE EVENT DATE: 20240508
